FAERS Safety Report 12159208 (Version 1)
Quarter: 2016Q1

REPORT INFORMATION
  Report Type: Report from Study
  Country: CO (occurrence: CO)
  Receive Date: 20160308
  Receipt Date: 20160308
  Transmission Date: 20160526
  Serious: Yes (Death, Other)
  Sender: FDA-Public Use
  Company Number: PHHY2016CO029969

PATIENT
  Age: 68 Year
  Sex: Female

DRUGS (1)
  1. AFINITOR [Suspect]
     Active Substance: EVEROLIMUS
     Indication: MEDIASTINUM NEOPLASM
     Dosage: 10 MG, QD
     Route: 048
     Dates: start: 20151003

REACTIONS (6)
  - Thrombosis [Unknown]
  - Pulmonary oedema [Unknown]
  - Inflammation [Unknown]
  - Death [Fatal]
  - Pericardial effusion [Unknown]
  - Product use issue [Unknown]

NARRATIVE: CASE EVENT DATE: 20151003
